FAERS Safety Report 9200285 (Version 1)
Quarter: 2013Q1

REPORT INFORMATION
  Report Type: Report from Study
  Country: DK (occurrence: DE)
  Receive Date: 20130329
  Receipt Date: 20130329
  Transmission Date: 20140127
  Serious: Yes (Other)
  Sender: FDA-Public Use
  Company Number: DE-FRI-1000043772

PATIENT
  Sex: Male

DRUGS (10)
  1. CITALOPRAM [Suspect]
     Dosage: 10 MG
     Route: 048
     Dates: start: 20120906, end: 20120907
  2. CITALOPRAM [Interacting]
     Dosage: 20 MG
     Route: 048
     Dates: start: 20120908, end: 20120912
  3. CITALOPRAM [Interacting]
     Dosage: 30 MG
     Route: 048
     Dates: start: 20120913, end: 20120917
  4. CITALOPRAM [Interacting]
     Dosage: 40 MG
     Route: 048
     Dates: start: 20120918, end: 20121002
  5. CITALOPRAM [Interacting]
     Dosage: 30 MG
     Route: 048
     Dates: start: 20121003
  6. CITALOPRAM [Interacting]
     Route: 048
     Dates: start: 2010, end: 2010
  7. NORVASC [Interacting]
     Dosage: 5 MG
     Route: 048
     Dates: start: 20120911, end: 20120919
  8. NORVASC [Interacting]
     Dosage: 10 MG
     Route: 048
     Dates: start: 20120920
  9. RAMIPRIL [Interacting]
     Dosage: 10 MG
     Route: 048
     Dates: start: 20120908
  10. HCT HEXAL [Concomitant]
     Dosage: 25 MG
     Route: 048
     Dates: start: 20120908

REACTIONS (2)
  - Erectile dysfunction [Recovering/Resolving]
  - Potentiating drug interaction [Recovering/Resolving]
